FAERS Safety Report 8517158-5 (Version None)
Quarter: 2012Q2

REPORT INFORMATION
  Report Type: 
  Country: None (occurrence: None)
  Receive Date: 20120406
  Receipt Date: 20101014
  Transmission Date: 20120825
  Serious: Yes (Hospitalization)
  Sender: FDA-Public Use
  Company Number: PHHY2010US69912

PATIENT
  Age: 86 Year
  Sex: Male

DRUGS (1)
  1. TASIGNA [Suspect]
     Dosage: 300 MG, BID, ORAL
     Route: 048

REACTIONS (1)
  - MYOCARDIAL INFARCTION [None]
